FAERS Safety Report 24675601 (Version 1)
Quarter: 2024Q4

REPORT INFORMATION
  Report Type: Report from Study
  Country: AT (occurrence: AT)
  Receive Date: 20241128
  Receipt Date: 20241128
  Transmission Date: 20250115
  Serious: Yes (Death)
  Sender: ABBVIE
  Company Number: AT-ABBVIE-6024810

PATIENT
  Sex: Male

DRUGS (1)
  1. FOSCARBIDOPA\FOSLEVODOPA [Suspect]
     Active Substance: FOSCARBIDOPA\FOSLEVODOPA
     Indication: Parkinson^s disease
     Dosage: CR 0.30ML/H; CRHIGH 0.34ML/H; CRLOW 0.18ML/H; ED 0.15ML, STOP DATE TEXT: DEATH (22-NOV-2024)
     Route: 058
     Dates: start: 20240826

REACTIONS (1)
  - Death [Fatal]

NARRATIVE: CASE EVENT DATE: 20241122
